FAERS Safety Report 9170531 (Version 2)
Quarter: 2013Q2

REPORT INFORMATION
  Report Type: Spontaneous
  Country: DE (occurrence: DE)
  Receive Date: 20130319
  Receipt Date: 20130424
  Transmission Date: 20140414
  Serious: Yes (Other)
  Sender: FDA-Public Use
  Company Number: DE-JNJFOC-20130308494

PATIENT
  Age: 6 Decade
  Sex: Male

DRUGS (5)
  1. REGAINE [Suspect]
     Route: 061
  2. REGAINE [Suspect]
     Indication: PRODUCT USED FOR UNKNOWN INDICATION
     Route: 061
     Dates: start: 201212, end: 201303
  3. MINOXIDIL [Suspect]
     Indication: PRODUCT USED FOR UNKNOWN INDICATION
     Route: 061
     Dates: start: 201212, end: 201303
  4. IBUPROFEN (UNSPECIFIED) [Concomitant]
     Route: 065
  5. PANTOPRAZOLE [Concomitant]
     Dosage: DAILY
     Route: 065

REACTIONS (6)
  - Generalised erythema [Not Recovered/Not Resolved]
  - Burning sensation [Not Recovered/Not Resolved]
  - Pruritus generalised [Not Recovered/Not Resolved]
  - Pain [Not Recovered/Not Resolved]
  - Chills [Recovered/Resolved]
  - Skin tightness [Unknown]
